FAERS Safety Report 10798377 (Version 6)
Quarter: 2015Q3

REPORT INFORMATION
  Report Type: Spontaneous
  Country: GB (occurrence: GB)
  Receive Date: 20150216
  Receipt Date: 20150817
  Transmission Date: 20151125
  Serious: Yes (Other)
  Sender: FDA-Public Use
  Company Number: PHFR2015GB001381

PATIENT
  Sex: Female

DRUGS (8)
  1. HYOSCINE HYDROBROMIDE [Suspect]
     Active Substance: SCOPOLAMINE
     Indication: SALIVARY HYPERSECRETION
     Dosage: 300 UG, QD (AT NIGHT AS NEEDED)
     Route: 060
  2. OXYBUTYNIN [Concomitant]
     Active Substance: OXYBUTYNIN
     Indication: MICTURITION URGENCY
     Route: 048
  3. SULPIRIDE [Suspect]
     Active Substance: SULPIRIDE
     Dosage: 100 MG, MANE AN SOCCASIONAL PRN X 100 MG
     Route: 048
  4. PROCYCLIDINE [Suspect]
     Active Substance: PROCYCLIDINE
     Indication: STRESS
  5. CLOZARIL [Suspect]
     Active Substance: CLOZAPINE
     Indication: SCHIZOPHRENIA
     Route: 048
     Dates: start: 20010701
  6. SULPIRIDE [Suspect]
     Active Substance: SULPIRIDE
     Indication: SCHIZOPHRENIA
     Dosage: 200 MG, QD
     Route: 048
  7. CLOZARIL [Suspect]
     Active Substance: CLOZAPINE
     Dosage: 350 MG, QD
     Route: 048
  8. PROCYCLIDINE [Suspect]
     Active Substance: PROCYCLIDINE
     Indication: EXTRAPYRAMIDAL DISORDER
     Dosage: 5 MG, BID (PRN)
     Route: 048

REACTIONS (8)
  - Stress [Unknown]
  - Dry mouth [Unknown]
  - Choking sensation [Recovering/Resolving]
  - Eye movement disorder [Recovering/Resolving]
  - Oculogyric crisis [Recovering/Resolving]
  - Salivary hypersecretion [Unknown]
  - Middle insomnia [Unknown]
  - Paraesthesia oral [Recovering/Resolving]

NARRATIVE: CASE EVENT DATE: 2012
